FAERS Safety Report 11790431 (Version 2)
Quarter: 2016Q1

REPORT INFORMATION
  Report Type: Spontaneous
  Country: US (occurrence: US)
  Receive Date: 20151201
  Receipt Date: 20160129
  Transmission Date: 20160525
  Serious: Yes (Hospitalization, Other)
  Sender: FDA-Public Use
  Company Number: US-BAYER-2015-478512

PATIENT
  Age: 27 Year
  Sex: Female
  Weight: 98.87 kg

DRUGS (3)
  1. PERCOCET [Concomitant]
     Active Substance: ACETAMINOPHEN\OXYCODONE HYDROCHLORIDE
  2. MIRENA [Suspect]
     Active Substance: LEVONORGESTREL
     Indication: CONTRACEPTION
     Dosage: 20 MCG/24HR, CONT
     Route: 015
     Dates: start: 20150209, end: 20150825
  3. NORCO [Concomitant]
     Active Substance: ACETAMINOPHEN\HYDROCODONE BITARTRATE

REACTIONS (9)
  - Muscular weakness [None]
  - Device issue [None]
  - Medical device pain [None]
  - Hypoaesthesia [None]
  - Device dislocation [None]
  - Genital haemorrhage [None]
  - Procedural pain [None]
  - Sciatica [None]
  - Device use error [None]

NARRATIVE: CASE EVENT DATE: 201502
